FAERS Safety Report 5095886-4 (Version None)
Quarter: 2006Q3

REPORT INFORMATION
  Report Type: 
  Country: None (occurrence: None)
  Receive Date: 20060905
  Receipt Date: 20060823
  Transmission Date: 20061208
  Serious: Yes (Other)
  Sender: FDA-Public Use
  Company Number: PHBS2006ZA13008

PATIENT
  Sex: Female

DRUGS (2)
  1. IBANDRONIC ACID [Concomitant]
  2. FEMARA [Suspect]
     Route: 048

REACTIONS (1)
  - DEAFNESS [None]
